FAERS Safety Report 5713446-6 (Version None)
Quarter: 2008Q2

REPORT INFORMATION
  Report Type: 
  Country: None (occurrence: None)
  Receive Date: 20080422
  Receipt Date: 20080421
  Transmission Date: 20081010
  Serious: Yes (Life-Threatening, Hospitalization)
  Sender: FDA-Public Use
  Company Number: JP-BOEHRINGER INGELHEIM GMBH, GERMANY-2008-BP-04686NB

PATIENT
  Sex: Male
  Weight: 68 kg

DRUGS (4)
  1. AGGRENOX [Suspect]
     Indication: CEREBROVASCULAR ACCIDENT PROPHYLAXIS
     Route: 048
     Dates: start: 20071006, end: 20080325
  2. PRORANON [Concomitant]
     Indication: GLAUCOMA
     Route: 031
     Dates: start: 20061001, end: 20080407
  3. XALATAN [Concomitant]
     Indication: GLAUCOMA
     Route: 031
     Dates: start: 20061001
  4. URSO 250 [Concomitant]
     Indication: POST CHOLECYSTECTOMY SYNDROME
     Route: 048
     Dates: start: 20020101

REACTIONS (1)
  - CEREBRAL HAEMORRHAGE [None]
